FAERS Safety Report 7315763-5 (Version None)
Quarter: 2011Q1

REPORT INFORMATION
  Report Type: 
  Country: None (occurrence: None)
  Receive Date: 20110225
  Receipt Date: 20110217
  Transmission Date: 20110831
  Serious: Yes (Other)
  Sender: FDA-Public Use
  Company Number: US-CEPHALON-2011000822

PATIENT
  Sex: Female
  Weight: 50 kg

DRUGS (4)
  1. NUVIGIL [Suspect]
     Indication: NARCOLEPSY
     Route: 048
     Dates: start: 20110128
  2. NUVARING [Concomitant]
     Dates: start: 20070101
  3. NUVIGIL [Suspect]
     Route: 048
     Dates: end: 20110215
  4. KLONOPIN [Concomitant]

REACTIONS (7)
  - APATHY [None]
  - NERVOUSNESS [None]
  - AGGRESSION [None]
  - ANGER [None]
  - DISTURBANCE IN ATTENTION [None]
  - CRYING [None]
  - PSYCHOMOTOR HYPERACTIVITY [None]
